FAERS Safety Report 8268540-5 (Version None)
Quarter: 2012Q2

REPORT INFORMATION
  Report Type: 
  Country: None (occurrence: None)
  Receive Date: 20120409
  Receipt Date: 20120329
  Transmission Date: 20120825
  Serious: Yes (Hospitalization)
  Sender: FDA-Public Use
  Company Number: FR-GLAXOSMITHKLINE-B0792135A

PATIENT
  Sex: Female
  Weight: 51 kg

DRUGS (7)
  1. ALPRAZOLAM [Concomitant]
     Route: 065
  2. ARIXTRA [Suspect]
     Indication: THROMBOPHLEBITIS
     Dosage: 7.5MG PER DAY
     Route: 058
     Dates: start: 20110101, end: 20110326
  3. IRBESARTAN [Concomitant]
     Route: 065
  4. VITAMIN D [Concomitant]
     Route: 065
  5. ACTONEL [Concomitant]
     Route: 065
  6. LANSOPRAZOLE [Concomitant]
     Route: 065
  7. ACETAMINOPHEN [Concomitant]
     Route: 065

REACTIONS (3)
  - INCORRECT DRUG ADMINISTRATION DURATION [None]
  - SHOCK HAEMORRHAGIC [None]
  - INTRA-ABDOMINAL HAEMATOMA [None]
